FAERS Safety Report 14784125 (Version 2)
Quarter: 2018Q2

REPORT INFORMATION
  Report Type: Spontaneous
  Country: PL (occurrence: PL)
  Receive Date: 20180420
  Receipt Date: 20180502
  Transmission Date: 20180711
  Serious: Yes (Hospitalization, Other)
  Sender: FDA-Public Use
  Company Number: PL-SA-2018SA102212

PATIENT
  Age: 63 Year
  Sex: Female
  Weight: 74 kg

DRUGS (6)
  1. TRASTUZUMAB. [Concomitant]
     Active Substance: TRASTUZUMAB
     Indication: INVASIVE DUCTAL BREAST CARCINOMA
     Route: 042
     Dates: start: 20160727, end: 20170119
  2. DOCETAXEL. [Suspect]
     Active Substance: DOCETAXEL
     Indication: INVASIVE DUCTAL BREAST CARCINOMA
     Route: 042
     Dates: start: 20161205, end: 20161205
  3. LAPATINIB [Suspect]
     Active Substance: LAPATINIB
     Indication: BREAST CANCER METASTATIC
     Route: 065
     Dates: start: 20170214
  4. PERJETA [Suspect]
     Active Substance: PERTUZUMAB
     Indication: INVASIVE DUCTAL BREAST CARCINOMA
     Route: 042
     Dates: start: 20160727, end: 20170119
  5. CAPECITABINE. [Suspect]
     Active Substance: CAPECITABINE
     Indication: BREAST CANCER METASTATIC
     Route: 065
     Dates: start: 20170214
  6. DOCETAXEL. [Suspect]
     Active Substance: DOCETAXEL
     Indication: INVASIVE DUCTAL BREAST CARCINOMA
     Route: 042
     Dates: start: 20160727, end: 20160727

REACTIONS (12)
  - Arthralgia [Unknown]
  - Rash pustular [Unknown]
  - Skin fissures [Unknown]
  - Myalgia [Unknown]
  - Tongue coated [Unknown]
  - Bone pain [Unknown]
  - Diarrhoea [Recovered/Resolved]
  - Rash [Recovered/Resolved]
  - Tongue erythema [Unknown]
  - Dysgeusia [Unknown]
  - Asthenia [Unknown]
  - Neutropenia [Unknown]

NARRATIVE: CASE EVENT DATE: 20160729
